FAERS Safety Report 5069416-7 (Version None)
Quarter: 2006Q3

REPORT INFORMATION
  Report Type: 
  Country: None (occurrence: None)
  Receive Date: 20060731
  Receipt Date: 20060720
  Transmission Date: 20061208
  Serious: Yes (Other)
  Sender: FDA-Public Use
  Company Number: 200613081BCC

PATIENT
  Age: 66 Year
  Sex: Female
  Weight: 66.6788 kg

DRUGS (3)
  1. ASPIRIN [Suspect]
     Indication: HEADACHE
     Dosage: OW ORAL
     Route: 048
  2. ACETAMINOPHEN [Concomitant]
  3. PREMARIN [Concomitant]

REACTIONS (2)
  - ARTERIAL RUPTURE [None]
  - HAEMORRHAGE [None]
